FAERS Safety Report 20572890 (Version 1)
Quarter: 2022Q1

REPORT INFORMATION
  Report Type: Spontaneous
  Country: US (occurrence: US)
  Receive Date: 20220309
  Receipt Date: 20220309
  Transmission Date: 20220423
  Serious: Yes (Hospitalization)
  Sender: FDA-Public Use
  Company Number: US-DSPHARMA-2022SUN000721

PATIENT
  Sex: Male

DRUGS (2)
  1. LATUDA [Interacting]
     Active Substance: LURASIDONE HYDROCHLORIDE
     Indication: Bipolar disorder
     Dosage: UNK
     Route: 048
  2. LITHIUM [Interacting]
     Active Substance: LITHIUM
     Dosage: UNK
     Route: 065

REACTIONS (4)
  - Drug interaction [Unknown]
  - Dysstasia [Unknown]
  - Balance disorder [Unknown]
  - Gait disturbance [Unknown]
